FAERS Safety Report 9435991 (Version 2)
Quarter: 2014Q2

REPORT INFORMATION
  Report Type: Spontaneous
  Country: US (occurrence: US)
  Receive Date: 20130801
  Receipt Date: 20140603
  Transmission Date: 20141212
  Serious: Yes (Disabling)
  Sender: FDA-Public Use
  Company Number: US-009507513-1307USA017087

PATIENT
  Sex: Female
  Weight: 63.4 kg

DRUGS (2)
  1. NUVARING [Suspect]
     Indication: CONTRACEPTION
     Dosage: UNK
     Route: 067
     Dates: start: 200811, end: 20091130
  2. ALBUTEROL SULFATE [Concomitant]
     Indication: ASTHMA
     Dosage: UNK
     Dates: start: 2003

REACTIONS (22)
  - Joint injury [Unknown]
  - Back injury [Unknown]
  - Deep vein thrombosis [Unknown]
  - Arthroscopy [Unknown]
  - Anticoagulation drug level below therapeutic [Unknown]
  - Crohn^s disease [Unknown]
  - Colitis ulcerative [Unknown]
  - Pneumonia [Unknown]
  - Transient ischaemic attack [Unknown]
  - Bradycardia [Unknown]
  - Heart rate irregular [Unknown]
  - Migraine [Unknown]
  - Dizziness [Unknown]
  - Thinking abnormal [Unknown]
  - Diarrhoea [Unknown]
  - Constipation [Unknown]
  - Flatulence [Unknown]
  - Abdominal pain [Unknown]
  - Acne [Unknown]
  - Patellofemoral pain syndrome [Unknown]
  - Lethargy [Unknown]
  - Pain [Unknown]
